FAERS Safety Report 11217670 (Version 1)
Quarter: 2015Q2

REPORT INFORMATION
  Report Type: Spontaneous
  Country: BR (occurrence: BR)
  Receive Date: 20150625
  Receipt Date: 20150625
  Transmission Date: 20150821
  Serious: Yes (Other)
  Sender: FDA-Public Use
  Company Number: BR-ACCORD-031562

PATIENT
  Age: 66 Year
  Sex: Male
  Weight: 66.6 kg

DRUGS (6)
  1. CISPLATIN. [Concomitant]
     Active Substance: CISPLATIN
     Indication: LUNG CARCINOMA CELL TYPE UNSPECIFIED STAGE 0
  2. RANITIDINE [Concomitant]
     Active Substance: RANITIDINE\RANITIDINE HYDROCHLORIDE
     Indication: PROPHYLAXIS
     Dosage: 1 AMPOULE, 50 MG/2ML
     Route: 042
     Dates: start: 20150610, end: 20150610
  3. DEXAMETHASONE. [Concomitant]
     Active Substance: DEXAMETHASONE
     Indication: PROPHYLAXIS
     Dosage: 1 AMPOULE ALONG WITH ONDANSETRON AND SALINE
     Route: 042
     Dates: start: 20150610, end: 20150610
  4. DIFENIDRIN [Concomitant]
     Active Substance: DIPHENHYDRAMINE
     Indication: PROPHYLAXIS
     Dosage: 50MG/ 1 ML WITH SALINE 100 ML
     Route: 042
     Dates: start: 20150610, end: 20150610
  5. PACLITAXEL/PACLITAXEL LIPOSOME [Suspect]
     Active Substance: PACLITAXEL
     Indication: LUNG CARCINOMA CELL TYPE UNSPECIFIED STAGE 0
     Route: 042
     Dates: start: 20150610, end: 20150610
  6. ONDANSETRON/ONDANSETRON HYDROCHLORIDE [Concomitant]
     Indication: PROPHYLAXIS
     Dosage: 8 MG/ 4 ML ALONG WITH DEXAMETHASONE AND SALINE
     Route: 042
     Dates: start: 20150610, end: 20150610

REACTIONS (2)
  - Respiratory distress [Recovered/Resolved]
  - Hyperaemia [Recovered/Resolved]

NARRATIVE: CASE EVENT DATE: 20150610
